FAERS Safety Report 12369987 (Version 2)
Quarter: 2017Q3

REPORT INFORMATION
  Report Type: Spontaneous
  Country: US (occurrence: US)
  Receive Date: 20160516
  Receipt Date: 20170829
  Transmission Date: 20171127
  Serious: Yes (Hospitalization)
  Sender: FDA-Public Use
  Company Number: US-ASTRAZENECA-2016SE50848

PATIENT
  Age: 857 Month
  Sex: Male
  Weight: 45.4 kg

DRUGS (3)
  1. TUDORZA PRESSAIR [Suspect]
     Active Substance: ACLIDINIUM BROMIDE
     Dosage: 400 MCG, ONE PUFF EVERY 12 HOURS
     Route: 055
     Dates: start: 20160421
  2. TUDORZA PRESSAIR [Suspect]
     Active Substance: ACLIDINIUM BROMIDE
     Dosage: 400 MCG, ONE PUFF EVERY 12 HOURS
     Route: 055
     Dates: start: 2016
  3. TYLENOL [Concomitant]
     Active Substance: ACETAMINOPHEN

REACTIONS (5)
  - Product quality issue [Unknown]
  - Dyspnoea [Recovered/Resolved with Sequelae]
  - Lung infection [Recovered/Resolved with Sequelae]
  - Bacterial infection [Recovered/Resolved with Sequelae]
  - Drug dose omission [Unknown]

NARRATIVE: CASE EVENT DATE: 201604
